FAERS Safety Report 16475587 (Version 1)
Quarter: 2019Q2

REPORT INFORMATION
  Report Type: Spontaneous
  Country: CZ (occurrence: CZ)
  Receive Date: 20190625
  Receipt Date: 20190625
  Transmission Date: 20190711
  Serious: Yes (Death, Other)
  Sender: FDA-Public Use
  Company Number: CZ-NAPPMUNDI-GBR-2019-0067450

PATIENT
  Age: 23 Year
  Sex: Female

DRUGS (20)
  1. OXYCODONE HYDROCHLORIDE. [Suspect]
     Active Substance: OXYCODONE HYDROCHLORIDE
     Dosage: 20 MG, BID
     Route: 065
  2. FENTANYL. [Suspect]
     Active Substance: FENTANYL
     Dosage: 150 MCG, UNK
     Route: 062
  3. NALOXONE [Suspect]
     Active Substance: NALOXONE
     Dosage: 10 MG, BID
     Route: 065
  4. FENTANYL. [Suspect]
     Active Substance: FENTANYL
     Dosage: 25 MCG, UNK
     Route: 062
  5. BUTYLSCOPOLAMINE [Suspect]
     Active Substance: BUTYLSCOPOLAMINE
     Indication: PAIN
     Dosage: 3 DF, DAILY (UNK UNK TID)
     Route: 065
  6. NALOXONE [Suspect]
     Active Substance: NALOXONE
     Indication: PAIN
     Dosage: 5 MG, DAILY (QD)
     Route: 065
  7. NALOXONE [Suspect]
     Active Substance: NALOXONE
     Dosage: 20 MG, BID
     Route: 065
  8. FLUOROURACIL. [Suspect]
     Active Substance: FLUOROURACIL
     Indication: METASTATIC GASTRIC CANCER
     Dosage: UNK
     Route: 065
  9. METAMIZOLE [Concomitant]
     Active Substance: METAMIZOLE
     Indication: PRODUCT USED FOR UNKNOWN INDICATION
     Dosage: 5 ML, UNK
     Route: 042
  10. OXYCODONE HYDROCHLORIDE. [Suspect]
     Active Substance: OXYCODONE HYDROCHLORIDE
     Dosage: 10 MG, BID
     Route: 065
  11. FENTANYL. [Suspect]
     Active Substance: FENTANYL
     Dosage: 133 MCG, UNK
     Route: 060
  12. FENTANYL. [Suspect]
     Active Substance: FENTANYL
     Dosage: 100 MCG, UNK
     Route: 006
  13. OXYCODONE HYDROCHLORIDE. [Suspect]
     Active Substance: OXYCODONE HYDROCHLORIDE
     Indication: PAIN
     Dosage: 40 MG, BID
     Route: 065
  14. FENTANYL. [Suspect]
     Active Substance: FENTANYL
     Indication: ABDOMINAL PAIN
     Dosage: 12.5 MCG, UNK
     Route: 062
  15. FENTANYL. [Suspect]
     Active Substance: FENTANYL
     Indication: PAIN
     Dosage: 50 MCG, (20 TIMES PER DAY)
     Route: 062
  16. FENTANYL. [Suspect]
     Active Substance: FENTANYL
     Dosage: UNK
     Route: 002
  17. PACLITAXEL. [Suspect]
     Active Substance: PACLITAXEL
     Indication: METASTATIC GASTRIC CANCER
     Dosage: UNK
     Route: 065
     Dates: start: 20160621
  18. RAMUCIRUMAB [Suspect]
     Active Substance: RAMUCIRUMAB
     Indication: METASTATIC GASTRIC CANCER
     Dosage: UNK
     Route: 065
  19. FOLINIC ACID [Suspect]
     Active Substance: LEUCOVORIN
     Indication: METASTATIC GASTRIC CANCER
     Dosage: UNK
     Route: 065
  20. OXALIPLATIN. [Suspect]
     Active Substance: OXALIPLATIN
     Indication: METASTATIC GASTRIC CANCER
     Dosage: UNK
     Route: 065

REACTIONS (11)
  - Vomiting [Fatal]
  - Malignant neoplasm progression [Fatal]
  - Overdose [Fatal]
  - Abdominal pain [Fatal]
  - Nausea [Fatal]
  - Metastatic gastric cancer [Fatal]
  - Product use in unapproved indication [Fatal]
  - Hypophagia [Fatal]
  - Drug ineffective [Fatal]
  - Ascites [Fatal]
  - Pain [Fatal]
